FAERS Safety Report 21396365 (Version 2)
Quarter: 2022Q4

REPORT INFORMATION
  Report Type: Report from Study
  Country: CO (occurrence: CO)
  Receive Date: 20220930
  Receipt Date: 20221030
  Transmission Date: 20230113
  Serious: Yes (Hospitalization)
  Sender: FDA-Public Use
  Company Number: CO-JNJFOC-20220841933

PATIENT
  Age: 27 Year
  Sex: Female
  Weight: 75 kg

DRUGS (6)
  1. INVEGA SUSTENNA [Suspect]
     Active Substance: PALIPERIDONE PALMITATE
     Indication: Schizophrenia
     Route: 030
     Dates: start: 20210325
  2. INVEGA SUSTENNA [Suspect]
     Active Substance: PALIPERIDONE PALMITATE
     Route: 030
     Dates: start: 20220606, end: 2022
  3. INVEGA SUSTENNA [Suspect]
     Active Substance: PALIPERIDONE PALMITATE
  4. LEVOMEPROMAZINE [Concomitant]
     Active Substance: LEVOMEPROMAZINE
  5. QUETIAPINE [Concomitant]
     Active Substance: QUETIAPINE
  6. VALPROIC ACID [Concomitant]
     Active Substance: VALPROIC ACID

REACTIONS (1)
  - Diabetic coma [Recovered/Resolved]

NARRATIVE: CASE EVENT DATE: 20220801
